FAERS Safety Report 19231669 (Version 1)
Quarter: 2021Q2

REPORT INFORMATION
  Report Type: Spontaneous
  Country: FR (occurrence: FR)
  Receive Date: 20210507
  Receipt Date: 20210507
  Transmission Date: 20210717
  Serious: Yes (Hospitalization)
  Sender: FDA-Public Use
  Company Number: FR-ASTRAZENECA-2021A374291

PATIENT
  Age: 27 Year
  Sex: Male
  Weight: 87.3 kg

DRUGS (11)
  1. QUETIAPINE. [Suspect]
     Active Substance: QUETIAPINE
     Indication: SCHIZOPHRENIA
     Route: 048
     Dates: start: 202011, end: 202012
  2. OLANZAPINE. [Suspect]
     Active Substance: OLANZAPINE
     Indication: SCHIZOPHRENIA
     Route: 048
     Dates: start: 202012
  3. LANSOYL [Concomitant]
     Active Substance: MINERAL OIL
     Route: 065
  4. SKENAN [Concomitant]
     Active Substance: MORPHINE SULFATE
     Route: 065
  5. PARACETAMOL [Concomitant]
     Active Substance: ACETAMINOPHEN
     Route: 065
  6. VENTOLINE [Concomitant]
     Active Substance: ALBUTEROL
     Route: 065
  7. TRANXENE [Suspect]
     Active Substance: CLORAZEPATE DIPOTASSIUM
     Indication: MIXED ANXIETY AND DEPRESSIVE DISORDER
     Route: 048
  8. ACTISKENAN [Concomitant]
     Active Substance: MORPHINE SULFATE
     Route: 065
  9. MOGADON [Suspect]
     Active Substance: NITRAZEPAM
     Indication: SLEEP DISORDER
     Route: 048
  10. TERCIAN [Suspect]
     Active Substance: CYAMEMAZINE
     Indication: SCHIZOPHRENIA
     Dosage: 25 MG MORNING AND NOON, 100 MG EVENING
     Route: 048
  11. VENLAFAXINE [Suspect]
     Active Substance: VENLAFAXINE HYDROCHLORIDE
     Indication: DEPRESSION
     Route: 048

REACTIONS (3)
  - Cor pulmonale acute [Recovered/Resolved]
  - Pulmonary embolism [Recovered/Resolved]
  - Peripheral sensory neuropathy [Not Recovered/Not Resolved]

NARRATIVE: CASE EVENT DATE: 20210324
